FAERS Safety Report 5130664-9 (Version None)
Quarter: 2006Q4

REPORT INFORMATION
  Report Type: 
  Country: None (occurrence: None)
  Receive Date: 20061018
  Receipt Date: 20061018
  Transmission Date: 20070319
  Serious: Yes (Hospitalization)
  Sender: FDA-Public Use
  Company Number: None

PATIENT
  Sex: Male

DRUGS (1)
  1. GM CSF [Suspect]
     Indication: PROSTATE CANCER
     Dosage: 75MG/M2 DAYS 1-14
     Dates: start: 20060918

REACTIONS (5)
  - CHEST PAIN [None]
  - DYSPNOEA [None]
  - ISCHAEMIA [None]
  - STENT PLACEMENT [None]
  - SURGICAL PROCEDURE REPEATED [None]
